FAERS Safety Report 5524749-2 (Version None)
Quarter: 2007Q4

REPORT INFORMATION
  Report Type: 
  Country: None (occurrence: None)
  Receive Date: 20071123
  Receipt Date: 20071120
  Transmission Date: 20080405
  Serious: Yes (Life-Threatening, Hospitalization)
  Sender: FDA-Public Use
  Company Number: PHFR2007GB03395

PATIENT
  Age: 43 Year
  Sex: Male
  Weight: 80 kg

DRUGS (1)
  1. DICLOFENAC SODIUM [Suspect]
     Dosage: 75MG PER DAY PRN
     Route: 048
     Dates: start: 20071020, end: 20071112

REACTIONS (1)
  - ANAPHYLACTIC REACTION [None]
